FAERS Safety Report 19297892 (Version 2)
Quarter: 2021Q3

REPORT INFORMATION
  Report Type: Report from Study
  Country: None (occurrence: US)
  Receive Date: 20210525
  Receipt Date: 20210729
  Transmission Date: 20211014
  Serious: Yes (Hospitalization, Other)
  Sender: FDA-Public Use
  Company Number: US-ABBVIE-21K-163-3749701-00

PATIENT
  Age: 38 Year
  Sex: Female

DRUGS (2)
  1. COLACE [Suspect]
     Active Substance: DOCUSATE SODIUM
     Indication: PRODUCT USED FOR UNKNOWN INDICATION
     Route: 048
  2. HUMIRA [Suspect]
     Active Substance: ADALIMUMAB
     Indication: CROHN^S DISEASE
     Route: 058
     Dates: start: 20201109

REACTIONS (11)
  - Post procedural complication [Unknown]
  - Post procedural diarrhoea [Unknown]
  - Weight gain poor [Unknown]
  - Fatigue [Not Recovered/Not Resolved]
  - Drug ineffective [Unknown]
  - Malaise [Recovered/Resolved]
  - Constipation [Recovered/Resolved]
  - Injection site bruising [Recovered/Resolved]
  - Insomnia [Recovered/Resolved]
  - Ileostomy closure [Unknown]
  - Decreased appetite [Recovered/Resolved]

NARRATIVE: CASE EVENT DATE: 2021
